FAERS Safety Report 9556050 (Version 1)
Quarter: 2013Q3

REPORT INFORMATION
  Report Type: Spontaneous
  Country: DE (occurrence: None)
  Receive Date: 20130813
  Receipt Date: 20130813
  Transmission Date: 20140515
  Serious: Yes (Other)
  Sender: FDA-Public Use
  Company Number: 2012AT000750

PATIENT
  Sex: Male

DRUGS (1)
  1. ALPROSTADIL [Suspect]
     Indication: OFF LABEL USE

REACTIONS (3)
  - Erection increased [None]
  - Painful erection [None]
  - Drug effect prolonged [None]
